FAERS Safety Report 5399496-0 (Version None)
Quarter: 2007Q3

REPORT INFORMATION
  Report Type: 
  Country: None (occurrence: None)
  Receive Date: 20070727
  Receipt Date: 20070716
  Transmission Date: 20080115
  Serious: Yes (Other)
  Sender: FDA-Public Use
  Company Number: US-PFIZER INC-2004101103

PATIENT
  Sex: Male
  Weight: 86.2 kg

DRUGS (3)
  1. CAVERJECT [Suspect]
     Indication: ERECTILE DYSFUNCTION
  2. CAVERJECT [Suspect]
     Indication: ORGANIC ERECTILE DYSFUNCTION
  3. LIPITOR [Concomitant]
     Route: 048

REACTIONS (2)
  - DEVICE BREAKAGE [None]
  - DRUG INEFFECTIVE [None]
